FAERS Safety Report 15979885 (Version 1)
Quarter: 2019Q1

REPORT INFORMATION
  Report Type: Spontaneous
  Country: US (occurrence: US)
  Receive Date: 20190218
  Receipt Date: 20190218
  Transmission Date: 20190418
  Serious: Yes (Other)
  Sender: FDA-Public Use
  Company Number: None

PATIENT
  Age: 71 Year
  Sex: Male
  Weight: 85.05 kg

DRUGS (3)
  1. MONTELUCAST GENERIC [Suspect]
     Active Substance: MONTELUKAST SODIUM
     Indication: ECZEMA
     Route: 048
     Dates: start: 20180311, end: 20190205
  2. MONTELUCAST 10 MG AROBINDO PHARMA [Concomitant]
     Active Substance: MONTELUKAST SODIUM
     Dates: start: 20190205, end: 20190218
  3. MONTELUCAST GENERIC [Suspect]
     Active Substance: MONTELUKAST SODIUM
     Indication: DERMATITIS ATOPIC
     Route: 048
     Dates: start: 20180311, end: 20190205

REACTIONS (2)
  - Dermatitis atopic [None]
  - Product substitution issue [None]

NARRATIVE: CASE EVENT DATE: 20190201
